FAERS Safety Report 12147687 (Version 7)
Quarter: 2016Q4

REPORT INFORMATION
  Report Type: Report from Study
  Country: US (occurrence: US)
  Receive Date: 20160304
  Receipt Date: 20161118
  Transmission Date: 20170207
  Serious: Yes (Hospitalization, Other)
  Sender: FDA-Public Use
  Company Number: US-AMGEN-USASL2016024916

PATIENT
  Age: 54 Year
  Sex: Female

DRUGS (4)
  1. ENBREL [Suspect]
     Active Substance: ETANERCEPT
     Indication: PSORIASIS
     Dosage: UNK
     Route: 065
  2. HUMIRA [Concomitant]
     Active Substance: ADALIMUMAB
     Dosage: UNK
  3. ENBREL [Suspect]
     Active Substance: ETANERCEPT
     Dosage: 50 MG, QWK
     Route: 065
     Dates: start: 20160828
  4. ENBREL [Suspect]
     Active Substance: ETANERCEPT
     Indication: PSORIATIC ARTHROPATHY
     Dosage: 50 MG, QWK
     Route: 065
     Dates: start: 20160309, end: 201606

REACTIONS (12)
  - Pneumothorax [Recovered/Resolved]
  - Drug dose omission [Not Recovered/Not Resolved]
  - Post procedural complication [Recovered/Resolved]
  - Abdominal adhesions [Unknown]
  - Adhesion [Unknown]
  - Coma [Recovered/Resolved]
  - Peripheral swelling [Not Recovered/Not Resolved]
  - Sepsis [Unknown]
  - Hernia [Unknown]
  - Catheter site infection [Unknown]
  - Gastrointestinal obstruction [Not Recovered/Not Resolved]
  - Gastrointestinal necrosis [Recovered/Resolved]

NARRATIVE: CASE EVENT DATE: 2013
